FAERS Safety Report 24271489 (Version 1)
Quarter: 2024Q3

REPORT INFORMATION
  Report Type: Spontaneous
  Country: FR (occurrence: FR)
  Receive Date: 20240901
  Receipt Date: 20240901
  Transmission Date: 20241017
  Serious: Yes (Hospitalization)
  Sender: JOHNSON AND JOHNSON
  Company Number: None

PATIENT
  Age: 38 Year
  Sex: Female
  Weight: 42 kg

DRUGS (5)
  1. SPORANOX [Suspect]
     Active Substance: ITRACONAZOLE
     Indication: Histoplasmosis disseminated
     Dosage: 1X PAR JOUR
     Route: 048
     Dates: end: 20240809
  2. PREDNISONE [Concomitant]
     Active Substance: PREDNISONE
     Dosage: 1X PAR JOUR
     Route: 048
  3. POTASSIUM CHLORIDE [Concomitant]
     Active Substance: POTASSIUM CHLORIDE
     Dosage: 4.0.4
  4. TIVICAY [Concomitant]
     Active Substance: DOLUTEGRAVIR SODIUM
     Dosage: 1X PAR JOUR
     Route: 048
  5. TRIUMEQ [Concomitant]
     Active Substance: ABACAVIR SULFATE\DOLUTEGRAVIR SODIUM\LAMIVUDINE
     Dosage: 1X PAR JOUR

REACTIONS (1)
  - Aborted pregnancy [Recovered/Resolved]

NARRATIVE: CASE EVENT DATE: 20240809
